FAERS Safety Report 12144474 (Version 1)
Quarter: 2016Q1

REPORT INFORMATION
  Report Type: Spontaneous
  Country: US (occurrence: None)
  Receive Date: 20160303
  Receipt Date: 20160303
  Transmission Date: 20160526
  Serious: Yes (Other)
  Sender: FDA-Public Use
  Company Number: None

PATIENT
  Age: 26 Year
  Weight: 74.84 kg

DRUGS (2)
  1. TRAMADOL 50MG GENERIC [Suspect]
     Active Substance: TRAMADOL
     Indication: PAIN
     Route: 048
     Dates: start: 20130920, end: 20131215
  2. TRAMADOL 50MG GENERIC [Suspect]
     Active Substance: TRAMADOL
     Indication: INTERVERTEBRAL DISC PROTRUSION
     Route: 048
     Dates: start: 20130920, end: 20131215

REACTIONS (10)
  - Fear [None]
  - Anxiety [None]
  - Depressed mood [None]
  - Rhinorrhoea [None]
  - Piloerection [None]
  - Lacrimation increased [None]
  - Feeling abnormal [None]
  - Chills [None]
  - Drug dependence [None]
  - Emotional distress [None]

NARRATIVE: CASE EVENT DATE: 20131215
